FAERS Safety Report 4294646-1 (Version None)
Quarter: 2004Q1

REPORT INFORMATION
  Report Type: 
  Country: None (occurrence: None)
  Receive Date: 20040211
  Receipt Date: 20040123
  Transmission Date: 20041129
  Serious: Yes (Hospitalization, Other)
  Sender: FDA-Public Use
  Company Number: DE_040112745

PATIENT
  Age: 41 Year
  Sex: Male

DRUGS (1)
  1. CIALIS [Suspect]
     Dosage: 20 MG/ AS NEEDED
     Dates: start: 20030715, end: 20030915

REACTIONS (14)
  - ALANINE AMINOTRANSFERASE INCREASED [None]
  - APLASTIC ANAEMIA [None]
  - ARTHRITIS REACTIVE [None]
  - ARTHROPATHY [None]
  - ASPARTATE AMINOTRANSFERASE INCREASED [None]
  - BONE MARROW DEPRESSION [None]
  - EPSTEIN-BARR VIRUS ANTIBODY POSITIVE [None]
  - INFECTION [None]
  - INFLUENZA [None]
  - JOINT SWELLING [None]
  - LIVER DISORDER [None]
  - PAIN IN EXTREMITY [None]
  - PANCYTOPENIA [None]
  - THROMBOCYTOPENIA [None]
